FAERS Safety Report 7314631-2 (Version None)
Quarter: 2011Q1

REPORT INFORMATION
  Report Type: 
  Country: None (occurrence: None)
  Receive Date: 20110225
  Receipt Date: 20101112
  Transmission Date: 20110831
  Serious: No
  Sender: FDA-Public Use
  Company Number: US-MYLANLABS-2010S1019434

PATIENT
  Age: 14 Year
  Sex: Male

DRUGS (1)
  1. AMNESTEEM [Suspect]
     Indication: ACNE
     Dosage: 4  TIMES WEEKLY
     Route: 048
     Dates: start: 20101019

REACTIONS (3)
  - PRURITUS [None]
  - PARAESTHESIA [None]
  - FORMICATION [None]
